FAERS Safety Report 5277213-2 (Version None)
Quarter: 2007Q1

REPORT INFORMATION
  Report Type: 
  Country: None (occurrence: None)
  Receive Date: 20070327
  Receipt Date: 20070315
  Transmission Date: 20070707
  Serious: Yes (Hospitalization)
  Sender: FDA-Public Use
  Company Number: US-JNJFOC-20070303931

PATIENT
  Sex: Male

DRUGS (16)
  1. INFLIXIMAB [Suspect]
     Indication: RHEUMATOID ARTHRITIS
     Dosage: Q8WKS
     Route: 042
  2. CELEBREX [Concomitant]
  3. CELEXA [Concomitant]
  4. COREG [Concomitant]
  5. DERMATOLOGICALS [Concomitant]
  6. ECOTRIN [Concomitant]
  7. FOLIC ACID [Concomitant]
  8. GLIPIZIDE [Concomitant]
  9. OMEPRAZOLE [Concomitant]
  10. POTASSIUM ACETATE [Concomitant]
  11. PREDNISONE [Concomitant]
  12. PREVACID [Concomitant]
  13. PROPOXYPHENE HYDROCHLORIDE [Concomitant]
  14. AVALIDE [Concomitant]
  15. NIASPAN [Concomitant]
  16. METHOTREXATE [Concomitant]

REACTIONS (2)
  - CELLULITIS [None]
  - DIABETIC FOOT [None]
